FAERS Safety Report 9116874 (Version 1)
Quarter: 2013Q1

REPORT INFORMATION
  Report Type: Spontaneous
  Country: JP (occurrence: JP)
  Receive Date: 20130225
  Receipt Date: 20130225
  Transmission Date: 20140127
  Serious: Yes (Death)
  Sender: FDA-Public Use
  Company Number: PHHY2013JP010664

PATIENT
  Age: 64 Year
  Sex: Male
  Weight: 50 kg

DRUGS (9)
  1. GLIVEC [Suspect]
     Indication: METASTASES TO LIVER
     Dosage: 400 MG, UNK
     Route: 048
     Dates: start: 20120307, end: 20121001
  2. PREMINENT [Concomitant]
     Indication: HYPERTENSION
     Dosage: 1 DF, UNK
     Route: 048
     Dates: start: 20120930
  3. TAKEPRON [Concomitant]
     Indication: PROPHYLAXIS AGAINST GASTROINTESTINAL ULCER
     Dosage: 15 MG, UNK
     Route: 048
     Dates: start: 20120704, end: 20121006
  4. DEPAS [Concomitant]
     Indication: SLEEP DISORDER
     Dosage: 1 MG, UNK
     Route: 048
     Dates: start: 20121008
  5. LOXONIN [Concomitant]
     Indication: ANTIPYRESIS
     Dosage: 180 MG, UNK
     Dates: start: 20120404, end: 20121006
  6. GASMOTIN [Concomitant]
     Route: 048
  7. MUCOSTA [Concomitant]
  8. HALCION [Concomitant]
     Route: 048
  9. LYRICA [Concomitant]
     Route: 048

REACTIONS (3)
  - Pneumocystis jirovecii pneumonia [Fatal]
  - Dyspnoea [Fatal]
  - Pyrexia [Fatal]
